FAERS Safety Report 7191125-9 (Version None)
Quarter: 2010Q4

REPORT INFORMATION
  Report Type: 
  Country: None (occurrence: None)
  Receive Date: 20101223
  Receipt Date: 20101216
  Transmission Date: 20110411
  Serious: Yes (Other)
  Sender: FDA-Public Use
  Company Number: ES-ROCHE-748876

PATIENT
  Age: 57 Year
  Sex: Female

DRUGS (2)
  1. HERCEPTIN [Suspect]
     Indication: BREAST CANCER
     Route: 042
     Dates: start: 20101103, end: 20101103
  2. TAXOTERE [Suspect]
     Indication: BREAST CANCER
     Dosage: STRENGTH:80MG/4ML
     Route: 042
     Dates: start: 20101103, end: 20101103

REACTIONS (2)
  - NEUTROPENIA [None]
  - SKIN TOXICITY [None]
